FAERS Safety Report 4472213-4 (Version None)
Quarter: 2004Q4

REPORT INFORMATION
  Report Type: 
  Country: None (occurrence: None)
  Receive Date: 20041008
  Receipt Date: 20040925
  Transmission Date: 20050328
  Serious: Yes (Hospitalization, Other)
  Sender: FDA-Public Use
  Company Number: 2004062996

PATIENT
  Age: 40 Year
  Sex: Male

DRUGS (1)
  1. GEODON [Suspect]
     Indication: ILL-DEFINED DISORDER
     Dosage: 2 IN 1 D, ORAL
     Route: 048
     Dates: start: 20030601, end: 20040801

REACTIONS (2)
  - DIABETES MELLITUS [None]
  - PANCREATITIS [None]
